FAERS Safety Report 21087724 (Version 1)
Quarter: 2022Q3

REPORT INFORMATION
  Report Type: Spontaneous
  Country: US (occurrence: None)
  Receive Date: 20220714
  Receipt Date: 20220714
  Transmission Date: 20221027
  Serious: Yes (Disabling)
  Sender: FDA-Public Use
  Company Number: None

PATIENT
  Age: 28 Year
  Sex: Male
  Weight: 72 kg

DRUGS (1)
  1. FINASTERIDE [Suspect]
     Active Substance: FINASTERIDE
     Indication: Alopecia
     Dosage: FREQUENCY : DAILY;?
     Route: 048
     Dates: start: 20180110, end: 20190615

REACTIONS (5)
  - Erectile dysfunction [None]
  - Loss of libido [None]
  - Emotional poverty [None]
  - Depersonalisation/derealisation disorder [None]
  - Vitreous floaters [None]

NARRATIVE: CASE EVENT DATE: 20190615
